FAERS Safety Report 6504803-9 (Version None)
Quarter: 2009Q4

REPORT INFORMATION
  Report Type: 
  Country: None (occurrence: None)
  Receive Date: 20091215
  Receipt Date: 20090226
  Transmission Date: 20100525
  Serious: Yes (Other)
  Sender: FDA-Public Use
  Company Number: WWISSUE-266

PATIENT
  Age: 50 Year
  Sex: Female

DRUGS (16)
  1. PREDNISONE TAB [Suspect]
     Indication: ASTHMA
  2. DIAZEPAM [Concomitant]
  3. HYDROCODONE BITARTRATE AND ACETAMINOPHEN [Concomitant]
  4. HYDROXYCHLOROQUINE SULFATE [Concomitant]
  5. LISINOPRIL TABS [Concomitant]
  6. NICOTINE [Concomitant]
  7. ACCOLATE TABS [Concomitant]
  8. PROAIR HFA [Concomitant]
  9. DIOVAN TABLET [Concomitant]
  10. PHENERGAN EXPECTORANT W/ CODEINE [Concomitant]
  11. DOXYCYCLINE CAPSULE [Concomitant]
  12. FLONASE [Concomitant]
  13. FIONASE NASAL SPRAY [Concomitant]
  14. PREDNISONE TABLET [Concomitant]
  15. ALBUTEROL [Concomitant]
  16. NITROQUICK TABLET (SUBLINGUAL) [Concomitant]

REACTIONS (1)
  - DRUG SCREEN FALSE POSITIVE [None]
